FAERS Safety Report 8619350-8 (Version None)
Quarter: 2012Q3

REPORT INFORMATION
  Report Type: 
  Country: None (occurrence: None)
  Receive Date: 20120816
  Receipt Date: 20120816
  Transmission Date: 20120928
  Serious: Yes (Hospitalization)
  Sender: FDA-Public Use
  Company Number: None

PATIENT
  Sex: Female
  Weight: 78.0187 kg

DRUGS (13)
  1. GEMCITABINE HYDROCHLORIDE [Suspect]
     Indication: TRANSITIONAL CELL CARCINOMA
     Dosage: 1200 MG/M^2 Q 2WKS X3
     Dates: start: 20120717, end: 20120731
  2. SIMVASTATIN [Concomitant]
  3. EMEND [Concomitant]
  4. MIRALAX [Concomitant]
  5. . [Concomitant]
  6. STOOL SOFTENER [Concomitant]
  7. NEULAST [Concomitant]
  8. ASPIRIN [Concomitant]
  9. CALCIUM WITH VITAMIN D [Concomitant]
  10. ZOFRAN [Concomitant]
  11. CISPLATIN [Suspect]
     Indication: TRANSITIONAL CELL CARCINOMA
     Dosage: 70 MG/M^2 Q 2WKS X3
     Dates: start: 20120717, end: 20120731
  12. LORAZEPAM [Concomitant]
  13. COMPAZINE [Concomitant]

REACTIONS (1)
  - RENAL FAILURE ACUTE [None]
